FAERS Safety Report 8313900-7 (Version None)
Quarter: 2012Q2

REPORT INFORMATION
  Report Type: 
  Country: None (occurrence: None)
  Receive Date: 20120426
  Receipt Date: 20120426
  Transmission Date: 20120825
  Serious: Yes (Hospitalization)
  Sender: FDA-Public Use
  Company Number: None

PATIENT
  Age: 36 Year
  Sex: Male
  Weight: 144.24 kg

DRUGS (4)
  1. HYDROCHLOROTHIAZIDE [Concomitant]
     Route: 048
  2. TRILIPIX [Suspect]
     Indication: HYPERTRIGLYCERIDAEMIA
     Dosage: 135MG
     Route: 048
     Dates: start: 20111028, end: 20111204
  3. METOPROLOL TARTRATE [Concomitant]
     Route: 048
  4. MULTI-VITAMIN [Concomitant]
     Route: 048

REACTIONS (2)
  - BLOOD GLUCOSE INCREASED [None]
  - PANCREATITIS ACUTE [None]
